FAERS Safety Report 23911138 (Version 6)
Quarter: 2025Q3

REPORT INFORMATION
  Report Type: Other
  Country: US (occurrence: US)
  Receive Date: 20240528
  Receipt Date: 20250918
  Transmission Date: 20251020
  Serious: Yes (Hospitalization)
  Sender: TRAVERE THERAPEUTICS
  Company Number: US-TRAVERE-2024TVT00516

PATIENT
  Age: 68 Year
  Sex: Female
  Weight: 78.02 kg

DRUGS (25)
  1. FILSPARI [Suspect]
     Active Substance: SPARSENTAN
     Indication: IgA nephropathy
     Dosage: TAKE 1 TABLET ONCE DAILY ON DAYS 1 THROUGH 14, THEN TAKE 2 TABLETS ONCE DAILY ON DAYS 15 THROUGH 30.
     Route: 048
     Dates: start: 20240501
  2. FILSPARI [Suspect]
     Active Substance: SPARSENTAN
     Indication: Chronic kidney disease
     Route: 048
  3. FILSPARI [Suspect]
     Active Substance: SPARSENTAN
     Indication: Haematuria
     Route: 048
  4. FILSPARI [Suspect]
     Active Substance: SPARSENTAN
     Route: 048
     Dates: start: 202408
  5. FILSPARI [Suspect]
     Active Substance: SPARSENTAN
     Dosage: 200 MG TWICE DAILY
     Route: 048
     Dates: start: 202408
  6. MONTELUKAST SODIUM [Concomitant]
     Active Substance: MONTELUKAST SODIUM
  7. ALENDRONATE SODIUM [Concomitant]
     Active Substance: ALENDRONATE SODIUM
  8. JARDIANCE [Concomitant]
     Active Substance: EMPAGLIFLOZIN
  9. NEBIVOLOL [Concomitant]
     Active Substance: NEBIVOLOL
  10. NIFEDIPINE [Concomitant]
     Active Substance: NIFEDIPINE
  11. HYDRALAZINE HCL [Concomitant]
     Active Substance: HYDRALAZINE HYDROCHLORIDE
  12. EZETIMIBE [Concomitant]
     Active Substance: EZETIMIBE
  13. FUROSEMIDE [Concomitant]
     Active Substance: FUROSEMIDE
  14. CALCIUM ACETATE [Concomitant]
     Active Substance: CALCIUM ACETATE
  15. ATORVASTATIN CALCIUM [Concomitant]
     Active Substance: ATORVASTATIN CALCIUM
  16. PANTOPRAZOLE SODIUM [Concomitant]
     Active Substance: PANTOPRAZOLE SODIUM
  17. BYSTOLIC [Concomitant]
     Active Substance: NEBIVOLOL HYDROCHLORIDE
  18. PROTONIX [Concomitant]
     Active Substance: PANTOPRAZOLE SODIUM
  19. FAMOTIDINE [Concomitant]
     Active Substance: FAMOTIDINE
  20. CALCIUM [Concomitant]
     Active Substance: CALCIUM
  21. PROAIR HFA [Concomitant]
     Active Substance: ALBUTEROL SULFATE
  22. LIPITOR [Concomitant]
     Active Substance: ATORVASTATIN CALCIUM
  23. LEVOTHYROXINE SODIUM [Concomitant]
     Active Substance: LEVOTHYROXINE SODIUM
  24. EMPAGLIFLOZIN [Concomitant]
     Active Substance: EMPAGLIFLOZIN
  25. Womens one daily [Concomitant]

REACTIONS (7)
  - Diverticulitis [Unknown]
  - Pneumonia [Unknown]
  - Hospitalisation [Unknown]
  - Fatigue [Unknown]
  - Weight decreased [Unknown]
  - Musculoskeletal chest pain [Unknown]
  - Off label use [Unknown]
